FAERS Safety Report 7685114-5 (Version None)
Quarter: 2011Q3

REPORT INFORMATION
  Report Type: 
  Country: None (occurrence: None)
  Receive Date: 20110816
  Receipt Date: 20110802
  Transmission Date: 20111222
  Serious: Yes (Hospitalization)
  Sender: FDA-Public Use
  Company Number: GR-RANBAXY-2011R1-46843

PATIENT
  Age: 51 Year
  Sex: Male

DRUGS (1)
  1. CEFACLOR [Suspect]
     Indication: PHARYNGITIS
     Dosage: 500 MG, UNK
     Route: 048

REACTIONS (1)
  - KOUNIS SYNDROME [None]
